FAERS Safety Report 21070411 (Version 1)
Quarter: 2022Q3

REPORT INFORMATION
  Report Type: Report from Study
  Country: US (occurrence: US)
  Receive Date: 20220712
  Receipt Date: 20220712
  Transmission Date: 20221027
  Serious: Yes (Death)
  Sender: FDA-Public Use
  Company Number: US-ABBVIE-22K-163-4463730-00

PATIENT
  Age: 92 Year
  Sex: Male

DRUGS (1)
  1. IMBRUVICA [Suspect]
     Active Substance: IBRUTINIB
     Indication: B-cell prolymphocytic leukaemia
     Route: 048
     Dates: start: 202108, end: 20220701

REACTIONS (1)
  - Death [Fatal]

NARRATIVE: CASE EVENT DATE: 20220701
